FAERS Safety Report 8203431 (Version 5)
Quarter: 2013Q2

REPORT INFORMATION
  Report Type: Report from Study
  Country: BE (occurrence: BE)
  Receive Date: 20111027
  Receipt Date: 20130613
  Transmission Date: 20140414
  Serious: Yes (Death, Hospitalization)
  Sender: FDA-Public Use
  Company Number: BE-ROCHE-1000497

PATIENT
  Age: 68 Year
  Sex: Male
  Weight: 75.5 kg

DRUGS (16)
  1. INTERFERON ALFA-2A [Suspect]
     Indication: RENAL CELL CARCINOMA
     Route: 058
     Dates: start: 20091118, end: 20110907
  2. INTERFERON ALFA-2A [Suspect]
     Route: 058
     Dates: end: 20110921
  3. BEVACIZUMAB [Suspect]
     Indication: RENAL CELL CARCINOMA
     Route: 042
     Dates: start: 20091118, end: 20100324
  4. FENTANYL CITRATE [Suspect]
     Indication: PRODUCT USED FOR UNKNOWN INDICATION
     Dosage: 12.5MCG
     Route: 065
  5. TEMSIROLIMUS [Suspect]
     Indication: PRODUCT USED FOR UNKNOWN INDICATION
     Route: 065
  6. L-THYROXIN [Concomitant]
  7. MAGNESPASMYL [Concomitant]
  8. EMCONCOR [Concomitant]
  9. LISINOPRIL [Concomitant]
  10. AMLOR [Concomitant]
  11. ASAFLOW [Concomitant]
  12. TAMSULOSIN [Concomitant]
  13. NUTRITIONAL SUPPLEMENT [Concomitant]
  14. OMEPRAZOLE [Concomitant]
  15. FORLAX (BELGIUM) [Concomitant]
  16. ELTHYRONE [Concomitant]

REACTIONS (3)
  - Metastases to bone [Recovered/Resolved]
  - Disease progression [Fatal]
  - Confusional state [Not Recovered/Not Resolved]
